FAERS Safety Report 17855955 (Version 1)
Quarter: 2020Q2

REPORT INFORMATION
  Report Type: Spontaneous
  Country: GB (occurrence: GB)
  Receive Date: 20200603
  Receipt Date: 20200603
  Transmission Date: 20200714
  Serious: Yes (Other)
  Sender: FDA-Public Use
  Company Number: GB-MYLANLABS-2020M1053549

PATIENT
  Age: 25 Year
  Sex: Female
  Weight: 97.52 kg

DRUGS (1)
  1. PREGABALIN MYLAN [Suspect]
     Active Substance: PREGABALIN
     Indication: JOINT DISLOCATION
     Dosage: 75 MILLIGRAM
     Route: 048
     Dates: start: 20200513, end: 20200513

REACTIONS (3)
  - Oral discomfort [Unknown]
  - Lip swelling [Recovered/Resolved with Sequelae]
  - Swollen tongue [Unknown]

NARRATIVE: CASE EVENT DATE: 20200513
